FAERS Safety Report 4634788-1 (Version None)
Quarter: 2005Q2

REPORT INFORMATION
  Report Type: 
  Country: None (occurrence: None)
  Receive Date: 20050412
  Receipt Date: 20050328
  Transmission Date: 20051028
  Serious: Yes (Death)
  Sender: FDA-Public Use
  Company Number: S05-USA-01523-01

PATIENT
  Age: 57 Year
  Sex: Male
  Weight: 79.3795 kg

DRUGS (15)
  1. LEXAPRO [Suspect]
     Indication: DEPRESSION
     Dosage: 10 MG QD PO
     Route: 048
     Dates: start: 20030702, end: 20030806
  2. LEXAPRO [Suspect]
     Indication: DEPRESSION
     Dosage: 5 MG QD PO
     Route: 048
     Dates: start: 20030807, end: 20030813
  3. FLUOXETINE [Suspect]
     Indication: DEPRESSION
     Dosage: 20 MG QD
     Dates: start: 20030806, end: 20030907
  4. LIBRAX [Concomitant]
  5. XANAX [Concomitant]
  6. HYDROCODONE BITARTRATE [Concomitant]
  7. VICODIN [Concomitant]
  8. HYDROMET SYRUP (HYDROCODONE) [Concomitant]
  9. LANOXIN [Concomitant]
  10. ACCUPRIL [Concomitant]
  11. QUINIDINE HCL [Concomitant]
  12. LOMOTIL (DIPHENOXYLATE AND ATROPINE) [Concomitant]
  13. COUMADIN [Concomitant]
  14. GUAIBID (GUAIFENESIN) [Concomitant]
  15. AMBIEN [Concomitant]

REACTIONS (15)
  - ASPHYXIA [None]
  - COMPLETED SUICIDE [None]
  - CONJUNCTIVAL HYPERAEMIA [None]
  - CYANOSIS [None]
  - DRUG EFFECT DECREASED [None]
  - EXCORIATION [None]
  - FATIGUE [None]
  - HEPATOMEGALY [None]
  - INSOMNIA [None]
  - LYMPHADENOPATHY [None]
  - PETECHIAE [None]
  - RESTLESSNESS [None]
  - SPLENOMEGALY [None]
  - VENTRICULAR HYPERTROPHY [None]
  - WEIGHT DECREASED [None]
